FAERS Safety Report 9833536 (Version 1)
Quarter: 2014Q1

REPORT INFORMATION
  Report Type: Spontaneous
  Country: ZA (occurrence: ZA)
  Receive Date: 20140122
  Receipt Date: 20140122
  Transmission Date: 20141002
  Serious: Yes (Other)
  Sender: FDA-Public Use
  Company Number: ZA-ACCORD-021402

PATIENT
  Age: 48 Year
  Sex: Female
  Weight: 77 kg

DRUGS (4)
  1. PROMETHAZINE [Concomitant]
     Dosage: DAILY ON DAY 1,8,15 AND 22
     Route: 042
     Dates: start: 20131017
  2. PAXITAS [Suspect]
     Indication: PRODUCT USED FOR UNKNOWN INDICATION
     Dosage: DAILY ON DAY 1,8,15 AND 22
     Route: 042
     Dates: start: 20130801
  3. DEXAMETHASONE [Concomitant]
     Dosage: DAILY ON DAY 1,8,15 AND 22
     Route: 042
     Dates: start: 20131017
  4. RANITIDINE [Concomitant]
     Dosage: DAILY ON DAY 1,8,15 AND 22
     Route: 042
     Dates: start: 20131017

REACTIONS (1)
  - Palmar-plantar erythrodysaesthesia syndrome [Recovered/Resolved]
